FAERS Safety Report 5785345-5 (Version None)
Quarter: 2008Q2

REPORT INFORMATION
  Report Type: 
  Country: None (occurrence: None)
  Receive Date: 20080624
  Receipt Date: 20070323
  Transmission Date: 20081010
  Serious: No
  Sender: FDA-Public Use
  Company Number: US-ASTRAZENECA-2007UW05963

PATIENT
  Age: 68 Year
  Sex: Female
  Weight: 63.5 kg

DRUGS (21)
  1. PULMICORT [Suspect]
     Indication: EMPHYSEMA
     Route: 055
  2. SPIRIVA [Concomitant]
  3. ADVAIR DISKUS 100/50 [Concomitant]
  4. ALLEGRA D [Concomitant]
  5. DETROL LA [Concomitant]
  6. FOSAMAX [Concomitant]
  7. HYDROCHLOROTHIAZIDE [Concomitant]
  8. LIDOCAINE [Concomitant]
  9. MULTI-VITAMIN [Concomitant]
  10. PRAVACHOL [Concomitant]
  11. LYRICA [Concomitant]
  12. PROZAC [Concomitant]
  13. SYNTHROID [Concomitant]
  14. TEGASEROD [Concomitant]
  15. VITAMIN E [Concomitant]
  16. XANAX [Concomitant]
  17. ZOLOFT [Concomitant]
  18. OSCAL [Concomitant]
  19. FOLEX [Concomitant]
  20. VITAMIN B-12 [Concomitant]
  21. TRIAMCINOLONE [Concomitant]

REACTIONS (3)
  - HYPOACUSIS [None]
  - NASAL CONGESTION [None]
  - STOMATITIS [None]
